FAERS Safety Report 19906124 (Version 2)
Quarter: 2021Q4

REPORT INFORMATION
  Report Type: Spontaneous
  Country: JP (occurrence: JP)
  Receive Date: 20211001
  Receipt Date: 20211101
  Transmission Date: 20220303
  Serious: Yes (Other)
  Sender: FDA-Public Use
  Company Number: JP-TAKEDA-2021TJP095758

PATIENT
  Age: 7 Decade
  Sex: Male

DRUGS (1)
  1. ADCETRIS [Suspect]
     Active Substance: BRENTUXIMAB VEDOTIN
     Indication: Peripheral T-cell lymphoma unspecified
     Dosage: 1.8 MILLIGRAM/KILOGRAM, Q3WEEKS
     Route: 041
     Dates: start: 20210615

REACTIONS (2)
  - Peripheral T-cell lymphoma unspecified [Unknown]
  - Disease progression [Unknown]
